FAERS Safety Report 5324231-1 (Version None)
Quarter: 2007Q2

REPORT INFORMATION
  Report Type: 
  Country: None (occurrence: None)
  Receive Date: 20070514
  Receipt Date: 20070504
  Transmission Date: 20071010
  Serious: Yes (Other)
  Sender: FDA-Public Use
  Company Number: AU-BRISTOL-MYERS SQUIBB COMPANY-13776455

PATIENT
  Age: 82 Year
  Sex: Female

DRUGS (3)
  1. METFORMIN HCL [Suspect]
     Route: 048
  2. RISPERDAL [Suspect]
     Route: 048
     Dates: end: 20060203
  3. SERTRALINE HCL [Suspect]
     Route: 048

REACTIONS (3)
  - HAIRY CELL LEUKAEMIA [None]
  - MENTAL STATUS CHANGES [None]
  - PANCYTOPENIA [None]
